FAERS Safety Report 7492160-3 (Version None)
Quarter: 2011Q2

REPORT INFORMATION
  Report Type: 
  Country: None (occurrence: None)
  Receive Date: 20110519
  Receipt Date: 20100713
  Transmission Date: 20111010
  Serious: Yes (Other)
  Sender: FDA-Public Use
  Company Number: CA-CELGENEUS-028-21660-11051990

PATIENT
  Sex: Female

DRUGS (2)
  1. ABRAXANE [Suspect]
     Dosage: 189 MILLIGRAM
     Dates: end: 20100618
  2. ABRAXANE [Suspect]
     Dosage: 189 MILLIGRAM
     Dates: start: 20100212

REACTIONS (3)
  - PARAESTHESIA [None]
  - CYST [None]
  - MUSCULAR WEAKNESS [None]
